FAERS Safety Report 6860135-0 (Version None)
Quarter: 2010Q3

REPORT INFORMATION
  Report Type: 
  Country: None (occurrence: None)
  Receive Date: 20100720
  Receipt Date: 20100712
  Transmission Date: 20110219
  Serious: Yes (Other)
  Sender: FDA-Public Use
  Company Number: US-PFIZER INC-2010076658

PATIENT
  Sex: Female
  Weight: 104 kg

DRUGS (4)
  1. CADUET [Suspect]
     Indication: HYPERTENSION
     Dosage: 10/40 UNK
     Route: 048
     Dates: start: 20100525, end: 20100614
  2. SIMVASTATIN [Concomitant]
     Dosage: UNK
  3. INSULIN [Concomitant]
     Indication: DIABETES MELLITUS
     Dosage: UNK
  4. PROCARDIA [Concomitant]
     Dosage: UNK

REACTIONS (5)
  - ANGIOEDEMA [None]
  - DYSPNOEA [None]
  - HEADACHE [None]
  - HYPERSENSITIVITY [None]
  - OXYGEN SATURATION DECREASED [None]
